FAERS Safety Report 5425213-1 (Version None)
Quarter: 2007Q3

REPORT INFORMATION
  Report Type: 
  Country: None (occurrence: None)
  Receive Date: 20070824
  Receipt Date: 20070813
  Transmission Date: 20080115
  Serious: Yes (Other)
  Sender: FDA-Public Use
  Company Number: BR-ROCHE-511769

PATIENT
  Age: 26 Year
  Sex: Female
  Weight: 73 kg

DRUGS (1)
  1. ISOTRETINOIN [Suspect]
     Indication: ACNE
     Route: 048
     Dates: start: 20061201

REACTIONS (3)
  - DRUG EXPOSURE DURING PREGNANCY [None]
  - NO ADVERSE REACTION [None]
  - PREGNANCY [None]
